FAERS Safety Report 8243526-5 (Version None)
Quarter: 2012Q1

REPORT INFORMATION
  Report Type: 
  Country: None (occurrence: None)
  Receive Date: 20120329
  Receipt Date: 20120322
  Transmission Date: 20120608
  Serious: Yes (Hospitalization)
  Sender: FDA-Public Use
  Company Number: PHHO2009DK10688

PATIENT
  Sex: Female

DRUGS (1)
  1. EVEROLIMUS [Suspect]
     Dosage: UNK
     Dates: start: 20090821, end: 20090921

REACTIONS (3)
  - LYMPHOCELE [None]
  - ABDOMINAL DISTENSION [None]
  - OEDEMA PERIPHERAL [None]
